FAERS Safety Report 20963138 (Version 11)
Quarter: 2023Q2

REPORT INFORMATION
  Report Type: Spontaneous
  Country: CA (occurrence: CA)
  Receive Date: 20220615
  Receipt Date: 20230412
  Transmission Date: 20230721
  Serious: Yes (Other)
  Sender: FDA-Public Use
  Company Number: CA-PFIZER INC-202200194572

PATIENT
  Age: 45 Year
  Sex: Female

DRUGS (11)
  1. XELJANZ [Suspect]
     Active Substance: TOFACITINIB CITRATE
     Indication: Colitis ulcerative
     Dosage: 10 MG BID  FOR 8 WEEKS FOLLOWED BY 5 MG BID
     Route: 048
     Dates: start: 20210127
  2. XELJANZ [Suspect]
     Active Substance: TOFACITINIB CITRATE
     Dosage: 10 MG, 2X/DAY
     Route: 048
     Dates: start: 20210127
  3. XELJANZ [Suspect]
     Active Substance: TOFACITINIB CITRATE
     Dosage: 10 MG BID  FOR 8 WEEKS FOLLOWED BY 5 MG BID
     Route: 048
     Dates: start: 20220127
  4. XELJANZ [Suspect]
     Active Substance: TOFACITINIB CITRATE
     Dosage: 10 MG, 2X/DAY
     Route: 048
     Dates: start: 20220127
  5. XELJANZ [Suspect]
     Active Substance: TOFACITINIB CITRATE
     Dosage: 5 MG, 2X/DAY
     Route: 048
  6. XELJANZ [Suspect]
     Active Substance: TOFACITINIB CITRATE
     Dosage: 10 MG, 2X/DAY (NOT YET STARTED)
     Route: 048
  7. XELJANZ [Suspect]
     Active Substance: TOFACITINIB CITRATE
     Dosage: 5 MG, 2X/DAY
     Route: 048
     Dates: end: 20220609
  8. XELJANZ [Suspect]
     Active Substance: TOFACITINIB CITRATE
     Dosage: 10 MG, 2X/DAY
     Route: 048
     Dates: start: 20220610
  9. XELJANZ [Suspect]
     Active Substance: TOFACITINIB CITRATE
     Dosage: UNK
     Route: 048
     Dates: end: 202208
  10. MESALAMINE [Concomitant]
     Active Substance: MESALAMINE
     Dosage: 1 DF(UNKNOWN ), DOSAGE INFO: UNKNOWN
     Route: 065
     Dates: start: 202111
  11. MESALAMINE [Concomitant]
     Active Substance: MESALAMINE
     Dosage: 1 DF (UNKOWN ) DOSAGE INFO: UNKOWN
     Route: 065
     Dates: start: 202103

REACTIONS (21)
  - Colitis ulcerative [Not Recovered/Not Resolved]
  - Haematochezia [Unknown]
  - Mucous stools [Not Recovered/Not Resolved]
  - Dry throat [Not Recovered/Not Resolved]
  - Oropharyngeal pain [Not Recovered/Not Resolved]
  - Chills [Not Recovered/Not Resolved]
  - Parosmia [Not Recovered/Not Resolved]
  - Taste disorder [Not Recovered/Not Resolved]
  - Illness [Unknown]
  - Pyrexia [Unknown]
  - Nasopharyngitis [Unknown]
  - Faeces soft [Unknown]
  - Flatulence [Unknown]
  - Abdominal distension [Unknown]
  - Micturition urgency [Not Recovered/Not Resolved]
  - Defaecation urgency [Unknown]
  - Condition aggravated [Recovered/Resolved]
  - Drug ineffective [Unknown]
  - Product dose omission issue [Unknown]
  - Therapeutic product effect incomplete [Unknown]
  - Drug ineffective [Unknown]

NARRATIVE: CASE EVENT DATE: 20220101
